FAERS Safety Report 4437859-8 (Version None)
Quarter: 2004Q3

REPORT INFORMATION
  Report Type: 
  Country: None (occurrence: None)
  Receive Date: 20040827
  Receipt Date: 20040728
  Transmission Date: 20050211
  Serious: Yes (Death, Other)
  Sender: FDA-Public Use
  Company Number: 8603

PATIENT
  Age: 43 Year
  Sex: Female
  Weight: 67 kg

DRUGS (1)
  1. METHOTREXATE [Suspect]
     Indication: NON-HODGKIN'S LYMPHOMA
     Dosage: 1.7 G DAILY
     Dates: start: 20040708, end: 20040708

REACTIONS (2)
  - ANAPHYLACTIC SHOCK [None]
  - MUCOSAL INFLAMMATION [None]
